FAERS Safety Report 14872466 (Version 1)
Quarter: 2018Q2

REPORT INFORMATION
  Report Type: Spontaneous
  Country: FR (occurrence: FR)
  Receive Date: 20180510
  Receipt Date: 20180510
  Transmission Date: 20180711
  Serious: Yes (Disabling)
  Sender: FDA-Public Use
  Company Number: FR-SUN PHARMACEUTICAL INDUSTRIES LTD-2018RR-172341

PATIENT
  Age: 60 Year
  Sex: Female

DRUGS (1)
  1. CIPROFLOXACIN. [Suspect]
     Active Substance: CIPROFLOXACIN
     Indication: PNEUMONIA PSEUDOMONAL
     Route: 048
     Dates: start: 20180224, end: 20180302

REACTIONS (2)
  - Tendonitis [Not Recovered/Not Resolved]
  - Complex regional pain syndrome [Not Recovered/Not Resolved]

NARRATIVE: CASE EVENT DATE: 20180302
